FAERS Safety Report 9535842 (Version 1)
Quarter: 2013Q3

REPORT INFORMATION
  Report Type: Spontaneous
  Country: US (occurrence: None)
  Receive Date: 20130917
  Receipt Date: 20130917
  Transmission Date: 20140515
  Serious: Yes (Hospitalization)
  Sender: FDA-Public Use
  Company Number: None

PATIENT
  Age: 65 Year
  Sex: Female
  Weight: 63.5 kg

DRUGS (3)
  1. BEVACIZUMAB [Suspect]
  2. CARBOPLATIN [Suspect]
  3. PACLITAXEL [Suspect]

REACTIONS (3)
  - Gastric haemorrhage [None]
  - Haematemesis [None]
  - Cardiac arrest [None]
